FAERS Safety Report 4438081-1 (Version None)
Quarter: 2004Q3

REPORT INFORMATION
  Report Type: 
  Country: None (occurrence: None)
  Receive Date: 20040831
  Receipt Date: 20040517
  Transmission Date: 20050211
  Serious: No
  Sender: FDA-Public Use
  Company Number: US-GLAXOSMITHKLINE-A0511062A

PATIENT
  Sex: Female

DRUGS (2)
  1. WELLBUTRIN XL [Suspect]
     Indication: ANXIETY
     Route: 048
  2. ZOLOFT [Concomitant]
     Indication: ANXIETY

REACTIONS (3)
  - FEELING ABNORMAL [None]
  - IRRITABILITY [None]
  - PANIC REACTION [None]
